FAERS Safety Report 8604703-4 (Version None)
Quarter: 2012Q3

REPORT INFORMATION
  Report Type: 
  Country: None (occurrence: None)
  Receive Date: 20120807
  Receipt Date: 20120725
  Transmission Date: 20120928
  Serious: Yes (Other)
  Sender: FDA-Public Use
  Company Number: AUR-APL-2011-00636

PATIENT
  Age: 52 Year
  Sex: Female

DRUGS (1)
  1. CEFUROXIME AXETIL [Suspect]
     Indication: EAR INFECTION
     Dosage: 1000 MG (500 MG, 2 IN 1 D),
     Dates: start: 20110217, end: 20110222

REACTIONS (13)
  - PRODUCT ODOUR ABNORMAL [None]
  - DYSPEPSIA [None]
  - PRODUCT TASTE ABNORMAL [None]
  - TABLET PHYSICAL ISSUE [None]
  - DRUG INEFFECTIVE [None]
  - DYSGEUSIA [None]
  - FOREIGN BODY [None]
  - SINUSITIS [None]
  - CHOKING [None]
  - DYSPHONIA [None]
  - VOMITING [None]
  - RETCHING [None]
  - PRODUCT QUALITY ISSUE [None]
